FAERS Safety Report 9301502 (Version 2)
Quarter: 2013Q2

REPORT INFORMATION
  Report Type: Spontaneous
  Country: US (occurrence: US)
  Receive Date: 20130521
  Receipt Date: 20130604
  Transmission Date: 20140414
  Serious: Yes (Other)
  Sender: FDA-Public Use
  Company Number: US-BAYER-2013-062471

PATIENT
  Age: 38 Year
  Sex: Female

DRUGS (1)
  1. MIRENA [Suspect]
     Indication: CONTRACEPTION
     Dosage: UNK
     Dates: start: 20120215

REACTIONS (5)
  - Ectopic pregnancy with intrauterine device [None]
  - Tubal rupture [None]
  - Drug ineffective [None]
  - Abdominal pain lower [None]
  - Device expulsion [None]
